FAERS Safety Report 11627329 (Version 1)
Quarter: 2015Q4

REPORT INFORMATION
  Report Type: Report from Study
  Country: US (occurrence: US)
  Receive Date: 20151013
  Receipt Date: 20151013
  Transmission Date: 20160304
  Serious: No
  Sender: FDA-Public Use
  Company Number: US-AMGEN-USASL2015086990

PATIENT
  Age: 51 Year
  Sex: Female

DRUGS (1)
  1. NEUPOGEN [Suspect]
     Active Substance: FILGRASTIM
     Indication: PROPHYLAXIS
     Dosage: UNK, UNK, 5 DAYS PER CYCLE
     Route: 065

REACTIONS (1)
  - Syringe issue [Recovered/Resolved]

NARRATIVE: CASE EVENT DATE: 20150713
